FAERS Safety Report 18914779 (Version 1)
Quarter: 2021Q1

REPORT INFORMATION
  Report Type: Spontaneous
  Country: JP (occurrence: JP)
  Receive Date: 20210219
  Receipt Date: 20210219
  Transmission Date: 20210420
  Serious: Yes (Hospitalization, Other)
  Sender: FDA-Public Use
  Company Number: NVSJ2021JP002533

PATIENT
  Sex: Male

DRUGS (1)
  1. ULTIBRO INHALATION CAPSULES [Suspect]
     Active Substance: GLYCOPYRRONIUM\INDACATEROL
     Indication: CHRONIC OBSTRUCTIVE PULMONARY DISEASE
     Dosage: UNK
     Route: 055

REACTIONS (12)
  - Cough [Recovering/Resolving]
  - Asthma [Unknown]
  - Oxygen saturation decreased [Unknown]
  - Nasopharyngitis [Unknown]
  - Asthma-chronic obstructive pulmonary disease overlap syndrome [Unknown]
  - Dyspnoea exertional [Unknown]
  - Pyrexia [Recovering/Resolving]
  - Plasma cell myeloma [Unknown]
  - Pneumonia [Unknown]
  - Rhinorrhoea [Recovering/Resolving]
  - Wheezing [Recovering/Resolving]
  - Rhinitis [Unknown]
